FAERS Safety Report 16642466 (Version 3)
Quarter: 2021Q2

REPORT INFORMATION
  Report Type: Other
  Country: JP (occurrence: JP)
  Receive Date: 20190729
  Receipt Date: 20210521
  Transmission Date: 20210716
  Serious: Yes (Other)
  Sender: FDA-Public Use
  Company Number: JP-ROCHE-1521340

PATIENT

DRUGS (2)
  1. TOCILIZUMAB. [Suspect]
     Active Substance: TOCILIZUMAB
     Indication: RHEUMATOID ARTHRITIS
     Route: 065
  2. METHOTREXATE. [Suspect]
     Active Substance: METHOTREXATE
     Indication: RHEUMATOID ARTHRITIS
     Route: 065

REACTIONS (21)
  - Arthritis bacterial [Unknown]
  - Cholangiocarcinoma [Unknown]
  - Empyema [Unknown]
  - Rash [Unknown]
  - Hepatobiliary disease [Unknown]
  - Cerebral haemorrhage [Unknown]
  - Dementia [Unknown]
  - Diverticulitis [Unknown]
  - Asthma [Unknown]
  - Gastric cancer [Unknown]
  - Infection [Unknown]
  - Coronary artery disease [Unknown]
  - Intestinal perforation [Unknown]
  - Pneumonia [Unknown]
  - Organising pneumonia [Unknown]
  - Interstitial lung disease [Unknown]
  - Cardiac failure [Unknown]
  - Lung abscess [Unknown]
  - Pulmonary mucormycosis [Unknown]
  - Gastric haemorrhage [Unknown]
  - Pleurisy [Unknown]
